FAERS Safety Report 14163570 (Version 2)
Quarter: 2017Q4

REPORT INFORMATION
  Report Type: Report from Study
  Country: US (occurrence: US)
  Receive Date: 20171106
  Receipt Date: 20171127
  Transmission Date: 20180321
  Serious: Yes (Hospitalization)
  Sender: FDA-Public Use
  Company Number: US-ACTELION-A-US2017-162051

PATIENT
  Age: 53 Year
  Sex: Female
  Weight: 88.44 kg

DRUGS (2)
  1. TRACLEER [Suspect]
     Active Substance: BOSENTAN
     Indication: PULMONARY ARTERIAL HYPERTENSION
     Dosage: 125 MG, BID
     Route: 048
  2. REVATIO [Concomitant]
     Active Substance: SILDENAFIL CITRATE

REACTIONS (5)
  - Headache [Unknown]
  - Brain neoplasm [Unknown]
  - Fluid retention [Unknown]
  - Limb operation [Unknown]
  - Brain operation [Unknown]

NARRATIVE: CASE EVENT DATE: 2017
